FAERS Safety Report 16687011 (Version 2)
Quarter: 2019Q3

REPORT INFORMATION
  Report Type: Spontaneous
  Country: CN (occurrence: CN)
  Receive Date: 20190809
  Receipt Date: 20190918
  Transmission Date: 20191004
  Serious: Yes (Other)
  Sender: FDA-Public Use
  Company Number: CN-JNJFOC-20190803897

PATIENT
  Age: 21 Year
  Sex: Female
  Weight: 52.5 kg

DRUGS (5)
  1. REMICADE [Suspect]
     Active Substance: INFLIXIMAB
     Dosage: 300 MG
     Route: 042
     Dates: start: 20190801
  2. REMICADE [Suspect]
     Active Substance: INFLIXIMAB
     Route: 042
     Dates: start: 20190718
  3. REMICADE [Suspect]
     Active Substance: INFLIXIMAB
     Indication: COLITIS ULCERATIVE
     Route: 042
     Dates: start: 2016
  4. METOCLOPRAMIDE. [Concomitant]
     Active Substance: METOCLOPRAMIDE
     Route: 030
     Dates: start: 20190730
  5. ENSURE [Concomitant]
     Active Substance: AMINO ACIDS\DEXTROSE\ELECTROLYTES NOS\SOYBEAN OIL\VITAMINS
     Route: 048

REACTIONS (16)
  - Chest discomfort [Recovered/Resolved]
  - Nausea [Unknown]
  - Blood pressure fluctuation [Unknown]
  - Pyrexia [Recovered/Resolved]
  - Vomiting [Unknown]
  - Flushing [Recovered/Resolved]
  - Frequent bowel movements [Recovered/Resolved]
  - Mucous stools [Recovering/Resolving]
  - Haematochezia [Recovered/Resolved]
  - Abdominal discomfort [Recovering/Resolving]
  - Dyspnoea [Recovered/Resolved]
  - Cough [Recovered/Resolved]
  - Infusion related reaction [Recovered/Resolved]
  - Rash erythematous [Recovered/Resolved]
  - Fatigue [Recovering/Resolving]
  - Pus in stool [Unknown]

NARRATIVE: CASE EVENT DATE: 20190730
